FAERS Safety Report 7497904-2 (Version None)
Quarter: 2011Q2

REPORT INFORMATION
  Report Type: 
  Country: None (occurrence: None)
  Receive Date: 20110524
  Receipt Date: 20110517
  Transmission Date: 20111010
  Serious: Yes (Other)
  Sender: FDA-Public Use
  Company Number: DE-BIOGENIDEC-2011BI014712

PATIENT
  Age: 51 Year
  Sex: Female
  Weight: 57 kg

DRUGS (6)
  1. CYANOCOBALAMIN [Concomitant]
     Route: 048
     Dates: start: 20100921
  2. NATALIZUMAB [Suspect]
     Indication: MULTIPLE SCLEROSIS
     Route: 042
     Dates: start: 20060210
  3. DYSTO LOGES [Concomitant]
     Route: 048
     Dates: start: 20110415
  4. NATALIZUMAB [Suspect]
     Route: 042
     Dates: start: 20101213
  5. NATALIZUMAB [Suspect]
     Route: 042
     Dates: start: 20060801, end: 20090714
  6. FEMI LOGES [Concomitant]
     Route: 048
     Dates: start: 20110415

REACTIONS (1)
  - MALIGNANT MELANOMA [None]
